FAERS Safety Report 7844734-5 (Version None)
Quarter: 2011Q4

REPORT INFORMATION
  Report Type: 
  Country: None (occurrence: None)
  Receive Date: 20111025
  Receipt Date: 20111018
  Transmission Date: 20120403
  Serious: Yes (Other)
  Sender: FDA-Public Use
  Company Number: MX-SANOFI-AVENTIS-2011SA068705

PATIENT
  Age: 79 Year
  Sex: Female
  Weight: 75 kg

DRUGS (4)
  1. OMEPRAZOLE [Concomitant]
     Indication: GASTRITIS
     Route: 048
  2. CLOPIDOGREL BISULFATE [Suspect]
     Indication: THROMBOSIS PROPHYLAXIS
     Route: 048
     Dates: start: 20070101, end: 20070101
  3. MICARDIS [Concomitant]
     Dosage: DOSE:0.5 UNIT(S)
     Route: 048
  4. NIMOTOP [Concomitant]
     Route: 048

REACTIONS (4)
  - EMBOLISM [None]
  - UNDERDOSE [None]
  - HEMIPLEGIA [None]
  - HAEMATOMA [None]
